FAERS Safety Report 4315416-1 (Version None)
Quarter: 2004Q1

REPORT INFORMATION
  Report Type: 
  Country: None (occurrence: None)
  Receive Date: 20040310
  Receipt Date: 20040302
  Transmission Date: 20041129
  Serious: Yes (Hospitalization)
  Sender: FDA-Public Use
  Company Number: TPA2004A00125

PATIENT
  Age: 66 Year
  Sex: Female

DRUGS (3)
  1. ACTOS [Suspect]
     Indication: DIABETES MELLITUS
     Dosage: SEE IMAGE
     Route: 048
  2. LENTE INSULIN [Concomitant]
  3. COUMADIN [Concomitant]

REACTIONS (14)
  - ANAEMIA OF CHRONIC DISEASE [None]
  - ANKLE FRACTURE [None]
  - AORTIC VALVE DISEASE [None]
  - CERVICAL VERTEBRAL FRACTURE [None]
  - CHEST DISCOMFORT [None]
  - DYSPNOEA [None]
  - FAECAL OCCULT BLOOD POSITIVE [None]
  - GASTRITIS [None]
  - HAEMOLYSIS [None]
  - IRON DEFICIENCY [None]
  - MULTIPLE FRACTURES [None]
  - POST-TRAUMATIC STRESS DISORDER [None]
  - RIB FRACTURE [None]
  - ROAD TRAFFIC ACCIDENT [None]
